FAERS Safety Report 8600025-6 (Version None)
Quarter: 2012Q3

REPORT INFORMATION
  Report Type: 
  Country: None (occurrence: None)
  Receive Date: 20120816
  Receipt Date: 20120806
  Transmission Date: 20120928
  Serious: Yes (Other)
  Sender: FDA-Public Use
  Company Number: CHPA2012US017983

PATIENT
  Age: 68 Year
  Sex: Female

DRUGS (5)
  1. BENEFIBER W/ WHEAT DEXTRIN [Suspect]
     Indication: NUTRITIONAL SUPPORT
     Dosage: 3 TSP, QD
     Route: 048
     Dates: end: 20120805
  2. DRUG THERAPY NOS [Suspect]
     Dosage: 6 TSP, 2-3 TIMES PER DAY
     Route: 048
     Dates: start: 20120815
  3. DRUG THERAPY NOS [Suspect]
     Indication: NUTRITIONAL SUPPORT
     Dosage: 3 TSP, QD
     Route: 048
     Dates: start: 20120801, end: 20120814
  4. CHEMOTHERAPEUTICS [Suspect]
     Indication: BREAST CANCER
     Dosage: UNK, UNK
  5. PRILOSEC [Concomitant]
     Dosage: UNK, UNK

REACTIONS (7)
  - CONSTIPATION [None]
  - BREAST CANCER [None]
  - MIGRAINE [None]
  - DIARRHOEA [None]
  - FIBROMYALGIA [None]
  - NASAL SEPTUM DEVIATION [None]
  - IRRITABLE BOWEL SYNDROME [None]
